FAERS Safety Report 22143080 (Version 1)
Quarter: 2023Q1

REPORT INFORMATION
  Report Type: Spontaneous
  Country: SI (occurrence: SI)
  Receive Date: 20230327
  Receipt Date: 20230327
  Transmission Date: 20230418
  Serious: Yes (Other)
  Sender: FDA-Public Use
  Company Number: SI-OTSUKA-2022_056007

PATIENT
  Age: 42 Year
  Sex: Female
  Weight: 57 kg

DRUGS (6)
  1. SERTRALINE [Suspect]
     Active Substance: SERTRALINE HYDROCHLORIDE
     Indication: Product used for unknown indication
     Dosage: 150 MILLIGRAM
     Route: 065
  2. ABILIFY [Suspect]
     Active Substance: ARIPIPRAZOLE
     Indication: Schizophrenia
     Dosage: 25 MILLIGRAM, QD
     Route: 048
  3. ABILIFY MAINTENA [Suspect]
     Active Substance: ARIPIPRAZOLE
     Indication: Schizophrenia
     Dosage: 400 MILLIGRAM, MONTHLY
     Route: 030
     Dates: start: 201512, end: 2019
  4. ABILIFY MAINTENA [Suspect]
     Active Substance: ARIPIPRAZOLE
     Dosage: 400 MG EVERY 3-3.5 WEEKS
     Route: 030
     Dates: start: 2019, end: 20220923
  5. OLANZAPINE [Concomitant]
     Active Substance: OLANZAPINE
     Indication: Insomnia
     Dosage: 2.5 MG, AS NECESSARY
     Route: 065
  6. OLANZAPINE [Concomitant]
     Active Substance: OLANZAPINE
     Indication: Anxiety

REACTIONS (6)
  - Post-injection delirium sedation syndrome [Recovered/Resolved]
  - COVID-19 [Recovered/Resolved]
  - Sinus bradycardia [Not Recovered/Not Resolved]
  - Aspartate aminotransferase increased [Unknown]
  - Anxiety [Unknown]
  - Restlessness [Unknown]

NARRATIVE: CASE EVENT DATE: 20190101
